FAERS Safety Report 9310199 (Version 1)
Quarter: 2013Q2

REPORT INFORMATION
  Report Type: Spontaneous
  Country: CH (occurrence: CH)
  Receive Date: 20130527
  Receipt Date: 20130527
  Transmission Date: 20140414
  Serious: Yes (Hospitalization, Other)
  Sender: FDA-Public Use
  Company Number: CH-009507513-1206USA04631

PATIENT
  Age: 43 Year
  Sex: Male
  Weight: 80 kg

DRUGS (6)
  1. SINGULAIR [Suspect]
     Indication: ASTHMA
     Dosage: UNK UNK, QD
     Route: 048
  2. XARELTO [Suspect]
     Indication: ATRIAL FIBRILLATION
     Dosage: 20 MG, QD
     Route: 048
     Dates: start: 20120522, end: 20120523
  3. XARELTO [Suspect]
     Indication: ATRIAL FLUTTER
  4. CITALOPRAM [Suspect]
     Indication: DEPRESSION
     Dosage: UNK UNK, QD
     Route: 048
  5. SYMBICORT [Concomitant]
     Indication: ASTHMA
     Dosage: 2 DF
     Route: 055
  6. AMLODIPINE [Concomitant]
     Indication: HYPERTENSIVE HEART DISEASE
     Dosage: 0.5 DF
     Route: 048

REACTIONS (1)
  - Grand mal convulsion [Recovered/Resolved]
